FAERS Safety Report 7148970-5 (Version None)
Quarter: 2010Q4

REPORT INFORMATION
  Report Type: 
  Country: None (occurrence: None)
  Receive Date: 20101126
  Receipt Date: 20101121
  Transmission Date: 20110411
  Serious: Yes (Death, Hospitalization)
  Sender: FDA-Public Use
  Company Number: 2010AC000149

PATIENT
  Age: 64 Year
  Sex: Female

DRUGS (20)
  1. DIGOXIN [Suspect]
     Dosage: 0.375 MG; QD; PO
     Route: 048
     Dates: start: 20060131, end: 20060206
  2. DIGOXIN [Suspect]
     Dosage: 0.375 MG; QOD; PO
     Route: 048
     Dates: start: 20060201, end: 20080229
  3. DIGOXIN [Suspect]
     Dosage: 0.250 MG; QOD; PO
     Route: 048
     Dates: start: 20060101, end: 20080229
  4. PREMARIN [Concomitant]
  5. SYNTHROID [Concomitant]
  6. PRILOSEC [Concomitant]
  7. K-DUR [Concomitant]
  8. CARDIZEM [Concomitant]
  9. HEPARIN [Concomitant]
  10. FUROSEMIDE [Concomitant]
  11. OXYGEN [Concomitant]
  12. WARFARIN SODIUM [Concomitant]
  13. ATENOLOL [Concomitant]
  14. VERAPAMIL [Concomitant]
  15. MAGNESIUM OXIDE [Concomitant]
  16. POTASSIUM CHLORIDE [Concomitant]
  17. ACETAMINOPHEN [Concomitant]
  18. CALCIUM [Concomitant]
  19. PEPCID [Concomitant]
  20. DOPAMINE [Concomitant]

REACTIONS (18)
  - ASPIRATION [None]
  - ATRIAL FIBRILLATION [None]
  - BRADYCARDIA [None]
  - CARDIAC FAILURE CONGESTIVE [None]
  - CARDIAC MURMUR [None]
  - CARDIOACTIVE DRUG LEVEL INCREASED [None]
  - CARDIOMEGALY [None]
  - FALL [None]
  - HEAD INJURY [None]
  - HEART RATE IRREGULAR [None]
  - HYPERTHYROIDISM [None]
  - HYPOKALAEMIA [None]
  - HYPOMAGNESAEMIA [None]
  - HYPOTHYROIDISM [None]
  - INJURY [None]
  - LOSS OF CONSCIOUSNESS [None]
  - MYOCARDIAL INFARCTION [None]
  - OEDEMA PERIPHERAL [None]
